FAERS Safety Report 5035819-X (Version None)
Quarter: 2006Q2

REPORT INFORMATION
  Report Type: 
  Country: None (occurrence: None)
  Receive Date: 20060622
  Receipt Date: 20060531
  Transmission Date: 20061013
  Serious: Yes (Life-Threatening, Hospitalization)
  Sender: FDA-Public Use
  Company Number: 2006RR-02593

PATIENT
  Age: 42 Year
  Sex: Male

DRUGS (1)
  1. DOXYCYCLINE [Suspect]
     Indication: PLEURODESIS
     Dosage: 300 G, INTRAPLEURAL
     Route: 034

REACTIONS (5)
  - ACUTE RESPIRATORY DISTRESS SYNDROME [None]
  - EMPYEMA [None]
  - HYPERHIDROSIS [None]
  - RHABDOMYOLYSIS [None]
  - TACHYCARDIA [None]
